FAERS Safety Report 4864723-2 (Version None)
Quarter: 2005Q4

REPORT INFORMATION
  Report Type: 
  Country: None (occurrence: None)
  Receive Date: 20051222
  Receipt Date: 20050426
  Transmission Date: 20060501
  Serious: Yes (Hospitalization, Other)
  Sender: FDA-Public Use
  Company Number: US-MERCK-0504USA04801

PATIENT
  Age: 88 Year
  Sex: Male
  Weight: 75 kg

DRUGS (3)
  1. VIOXX [Suspect]
     Indication: OSTEOARTHRITIS
     Route: 048
  2. XANAX [Concomitant]
     Route: 065
  3. PREVACID [Concomitant]
     Route: 065

REACTIONS (11)
  - APHASIA [None]
  - ARTHRALGIA [None]
  - ASTHENIA [None]
  - CARDIAC ARREST [None]
  - CARDIAC FAILURE CONGESTIVE [None]
  - CARDIOVASCULAR DISORDER [None]
  - CEREBRAL INFARCTION [None]
  - FALL [None]
  - INJURY [None]
  - PAIN [None]
  - SHOULDER PAIN [None]
